FAERS Safety Report 16048289 (Version 2)
Quarter: 2019Q1

REPORT INFORMATION
  Report Type: Spontaneous
  Country: US (occurrence: US)
  Receive Date: 20190307
  Receipt Date: 20190308
  Transmission Date: 20190418
  Serious: Yes (Death, Other)
  Sender: FDA-Public Use
  Company Number: US-ASTRAZENECA-2018SF33450

PATIENT
  Age: 59 Year
  Sex: Male
  Weight: 65.8 kg

DRUGS (26)
  1. PRILOSEC [Suspect]
     Active Substance: OMEPRAZOLE MAGNESIUM
     Route: 048
     Dates: start: 201612, end: 201612
  2. FUROSEMIDE. [Concomitant]
     Active Substance: FUROSEMIDE
  3. COREG [Concomitant]
     Active Substance: CARVEDILOL
  4. DIGOXIN. [Concomitant]
     Active Substance: DIGOXIN
  5. ZESTRIL [Concomitant]
     Active Substance: LISINOPRIL
  6. NEXIUM 24HR [Suspect]
     Active Substance: ESOMEPRAZOLE MAGNESIUM
     Route: 048
     Dates: start: 201612, end: 201612
  7. PREVACID [Suspect]
     Active Substance: LANSOPRAZOLE
     Route: 065
     Dates: start: 20041027, end: 20100226
  8. KLONOPIN [Concomitant]
     Active Substance: CLONAZEPAM
  9. NORVASC [Concomitant]
     Active Substance: AMLODIPINE BESYLATE
  10. COUMADIN [Concomitant]
     Active Substance: WARFARIN SODIUM
  11. TELMISARTAN. [Concomitant]
     Active Substance: TELMISARTAN
  12. ATIVAN [Concomitant]
     Active Substance: LORAZEPAM
  13. PREVACID [Suspect]
     Active Substance: LANSOPRAZOLE
     Route: 065
     Dates: start: 201612, end: 201612
  14. EXELON [Concomitant]
     Active Substance: RIVASTIGMINE TARTRATE
  15. NEXIUM [Suspect]
     Active Substance: ESOMEPRAZOLE MAGNESIUM
     Route: 048
     Dates: start: 20060101, end: 20151106
  16. METOPROLOL. [Concomitant]
     Active Substance: METOPROLOL
  17. ASPIRIN. [Concomitant]
     Active Substance: ASPIRIN
  18. NEXIUM [Suspect]
     Active Substance: ESOMEPRAZOLE MAGNESIUM
     Route: 048
     Dates: start: 201612, end: 201612
  19. PREVACID 24 HR [Suspect]
     Active Substance: LANSOPRAZOLE
     Route: 065
     Dates: start: 201612, end: 201612
  20. HYDROCODONE-ACETAMINOPHEN [Concomitant]
     Active Substance: ACETAMINOPHEN\HYDROCODONE
  21. ZOFRAN ODT [Concomitant]
     Active Substance: ONDANSETRON HYDROCHLORIDE
  22. ZOCOR [Concomitant]
     Active Substance: SIMVASTATIN
  23. CLONIDINE HYDROCHLORIDE. [Concomitant]
     Active Substance: CLONIDINE HYDROCHLORIDE
  24. PROTONIX [Suspect]
     Active Substance: PANTOPRAZOLE SODIUM
     Route: 065
     Dates: start: 201612, end: 201612
  25. PROTONIX [Suspect]
     Active Substance: PANTOPRAZOLE SODIUM
     Route: 065
     Dates: start: 20130405, end: 20160413
  26. NICODERM CQ [Concomitant]
     Active Substance: NICOTINE

REACTIONS (7)
  - Renal injury [Unknown]
  - Nephrogenic anaemia [Unknown]
  - Death [Fatal]
  - Chronic kidney disease [Unknown]
  - Renal failure [Unknown]
  - End stage renal disease [Unknown]
  - Acute kidney injury [Unknown]
